FAERS Safety Report 16683316 (Version 1)
Quarter: 2019Q3

REPORT INFORMATION
  Report Type: Spontaneous
  Country: US (occurrence: US)
  Receive Date: 20190808
  Receipt Date: 20190808
  Transmission Date: 20191004
  Serious: Yes (Life-Threatening, Other)
  Sender: FDA-Public Use
  Company Number: US-AMGEN-USASP2019125273

PATIENT
  Age: 73 Year
  Sex: Female

DRUGS (1)
  1. PROLIA [Suspect]
     Active Substance: DENOSUMAB
     Indication: OSTEOPOROSIS POSTMENOPAUSAL
     Dosage: 60 MILLIGRAM
     Route: 065
     Dates: start: 201402, end: 201709

REACTIONS (8)
  - Scar [Recovered/Resolved]
  - Arthropod bite [Recovered/Resolved]
  - Infection [Recovered/Resolved]
  - Sciatica [Recovered/Resolved]
  - Transient ischaemic attack [Recovered/Resolved]
  - Arthralgia [Recovered/Resolved]
  - Swollen tongue [Recovered/Resolved]
  - Dermatitis atopic [Recovered/Resolved]

NARRATIVE: CASE EVENT DATE: 2016
